FAERS Safety Report 19280981 (Version 2)
Quarter: 2021Q2

REPORT INFORMATION
  Report Type: Spontaneous
  Country: CZ (occurrence: CZ)
  Receive Date: 20210521
  Receipt Date: 20210603
  Transmission Date: 20210717
  Serious: Yes (Other)
  Sender: FDA-Public Use
  Company Number: CZ-CELLTRION INC.-2021CZ006739

PATIENT

DRUGS (2)
  1. INFLIXIMAB (UNKNOWN) [Suspect]
     Active Substance: INFLIXIMAB
     Indication: PRODUCT USED FOR UNKNOWN INDICATION
     Dosage: 10 MG/KG (SECOND LINE)
  2. INFLIXIMAB (UNKNOWN) [Suspect]
     Active Substance: INFLIXIMAB
     Dosage: 5 MG/KG (SECOND LINE) (ONCE EVERY 4 WEEKS)

REACTIONS (3)
  - Colitis [Unknown]
  - Drug ineffective [Unknown]
  - Drug level decreased [Unknown]

NARRATIVE: CASE EVENT DATE: 202101
